FAERS Safety Report 10230020 (Version 1)
Quarter: 2014Q2

REPORT INFORMATION
  Report Type: Report from Study
  Country: TN (occurrence: TN)
  Receive Date: 20140611
  Receipt Date: 20140611
  Transmission Date: 20141212
  Serious: Yes (Death)
  Sender: FDA-Public Use
  Company Number: TN-SA-2014SA073433

PATIENT
  Age: 73 Year
  Sex: Male

DRUGS (7)
  1. PLAVIX [Suspect]
     Indication: MYOCARDIAL INFARCTION
     Dosage: DOSE 75/D
     Route: 048
     Dates: start: 20130517, end: 20131130
  2. ASPEGIC [Concomitant]
     Route: 048
  3. CAPTOPRIL [Concomitant]
     Route: 048
  4. ALDACTONE [Concomitant]
     Route: 048
  5. ATOR [Concomitant]
     Route: 048
  6. SINTROM [Concomitant]
     Route: 048
  7. CINCOR [Concomitant]
     Route: 048

REACTIONS (2)
  - Chest pain [Fatal]
  - Intentional product misuse [Unknown]
